FAERS Safety Report 23576514 (Version 1)
Quarter: 2024Q1

REPORT INFORMATION
  Report Type: Report from Study
  Country: US (occurrence: None)
  Receive Date: 20240228
  Receipt Date: 20240228
  Transmission Date: 20240410
  Serious: Yes (Hospitalization, Other)
  Sender: FDA-Public Use
  Company Number: 2024A043981

PATIENT
  Sex: Female

DRUGS (1)
  1. LYNPARZA [Suspect]
     Active Substance: OLAPARIB
     Indication: Ovarian cancer
     Route: 048

REACTIONS (5)
  - Blood pressure inadequately controlled [Unknown]
  - Cyst [Unknown]
  - Hernia [Unknown]
  - Blood pressure increased [Unknown]
  - Product dose omission issue [Unknown]
